FAERS Safety Report 6123925-8 (Version None)
Quarter: 2009Q1

REPORT INFORMATION
  Report Type: 
  Country: None (occurrence: None)
  Receive Date: 20090319
  Receipt Date: 20090311
  Transmission Date: 20090719
  Serious: Yes (Hospitalization)
  Sender: FDA-Public Use
  Company Number: US-BIOGENIDEC-2009BI007639

PATIENT
  Age: 50 Year
  Sex: Female

DRUGS (2)
  1. AVONEX [Suspect]
     Indication: MULTIPLE SCLEROSIS
     Route: 030
     Dates: end: 20090116
  2. AVONEX [Suspect]
     Route: 030

REACTIONS (4)
  - DIARRHOEA [None]
  - INJECTION SITE ABSCESS [None]
  - PYREXIA [None]
  - VOMITING [None]
